FAERS Safety Report 8319148-4 (Version None)
Quarter: 2012Q2

REPORT INFORMATION
  Report Type: 
  Country: None (occurrence: None)
  Receive Date: 20120427
  Receipt Date: 20120423
  Transmission Date: 20120825
  Serious: Yes (Life-Threatening, Hospitalization)
  Sender: FDA-Public Use
  Company Number: FR-MERCK-1204FRA00106

PATIENT
  Age: 48 Year
  Sex: Female

DRUGS (4)
  1. LERCANIDIPINE HYDROCHLORIDE [Concomitant]
     Route: 048
  2. JANUMET [Suspect]
     Indication: TYPE 2 DIABETES MELLITUS
     Route: 048
     Dates: end: 20111101
  3. INFLUENZA VIRUS SPLIT VIRION 3V VACCINE INACTIVATED [Suspect]
     Route: 058
     Dates: start: 20111031, end: 20111031
  4. PERINDOPRIL ARGININE [Concomitant]
     Route: 048

REACTIONS (1)
  - GUILLAIN-BARRE SYNDROME [None]
